FAERS Safety Report 8214937-9 (Version None)
Quarter: 2012Q1

REPORT INFORMATION
  Report Type: 
  Country: None (occurrence: None)
  Receive Date: 20120316
  Receipt Date: 20120313
  Transmission Date: 20120608
  Serious: Yes (Other)
  Sender: FDA-Public Use
  Company Number: US-PFIZER INC-2012028239

PATIENT
  Sex: Female
  Weight: 58.503 kg

DRUGS (5)
  1. EFFEXOR XR [Suspect]
     Indication: ANXIETY
     Dosage: 150 MG, 1X/DAY
     Route: 048
     Dates: start: 20090101, end: 20111201
  2. LOSARTAN [Concomitant]
     Indication: BLOOD PRESSURE INCREASED
     Dosage: UNK
  3. CARVEDILOL [Concomitant]
     Indication: BLOOD PRESSURE INCREASED
     Dosage: UNK
  4. CRESTOR [Concomitant]
     Dosage: UNK
  5. PROTONIX [Concomitant]
     Indication: GASTRIC DISORDER
     Dosage: UNK

REACTIONS (2)
  - ANXIETY [None]
  - DEPRESSION [None]
